FAERS Safety Report 13798491 (Version 1)
Quarter: 2017Q3

REPORT INFORMATION
  Report Type: Spontaneous
  Country: US (occurrence: US)
  Receive Date: 20170727
  Receipt Date: 20170727
  Transmission Date: 20171127
  Serious: Yes (Other)
  Sender: FDA-Public Use
  Company Number: US-NAPPMUNDI-USA-2017-0140013

PATIENT
  Sex: Male

DRUGS (1)
  1. OXYCODONE HYDROCHLORIDE (SIMILAR TO NDA 22-272) [Suspect]
     Active Substance: OXYCODONE HYDROCHLORIDE
     Indication: PRODUCT USED FOR UNKNOWN INDICATION
     Dosage: 60 MG (30 MG X 2), UNK
     Route: 048

REACTIONS (6)
  - Road traffic accident [Unknown]
  - Euphoric mood [Unknown]
  - Drug abuse [Unknown]
  - Impaired driving ability [Unknown]
  - Dysarthria [Unknown]
  - Incoherent [Unknown]
